FAERS Safety Report 4623480-5 (Version None)
Quarter: 2005Q1

REPORT INFORMATION
  Report Type: 
  Country: None (occurrence: None)
  Receive Date: 20050330
  Receipt Date: 20050314
  Transmission Date: 20050727
  Serious: Yes (Hospitalization)
  Sender: FDA-Public Use
  Company Number: S05-UKI-01070-01

PATIENT
  Age: 90 Year
  Sex: Female

DRUGS (10)
  1. EBIXA (MEMANTINE) [Suspect]
     Indication: DEMENTIA ALZHEIMER'S TYPE
     Dosage: 15 MG QD PO
     Route: 048
     Dates: end: 20050304
  2. EBIXA (MEMANTINE) [Suspect]
     Indication: DEMENTIA ALZHEIMER'S TYPE
     Dosage: 5 MG QD PO
     Route: 048
     Dates: start: 20050202
  3. DIGOXIN [Concomitant]
  4. GLIPIZIDE [Concomitant]
  5. AMLODIPINE [Concomitant]
  6. ATENOLOL [Concomitant]
  7. FRUSEMIDE [Concomitant]
  8. ISMO [Concomitant]
  9. CLOPIDOGREL [Concomitant]
  10. DIAZEPAM [Concomitant]

REACTIONS (8)
  - ANOREXIA [None]
  - BLOOD THYROID STIMULATING HORMONE DECREASED [None]
  - C-REACTIVE PROTEIN INCREASED [None]
  - DECREASED IMMUNE RESPONSIVENESS [None]
  - MUSCULAR WEAKNESS [None]
  - MYALGIA [None]
  - MYOPATHY [None]
  - WEIGHT DECREASED [None]
